FAERS Safety Report 17053550 (Version 1)
Quarter: 2019Q4

REPORT INFORMATION
  Report Type: Report from Study
  Country: IT (occurrence: IT)
  Receive Date: 20191120
  Receipt Date: 20191120
  Transmission Date: 20200122
  Serious: Yes (Hospitalization)
  Sender: FDA-Public Use
  Company Number: IT-MYLANLABS-2019M1110380

PATIENT
  Age: 74 Year
  Sex: Male

DRUGS (7)
  1. TICLOPIDINE [Suspect]
     Active Substance: TICLOPIDINE
     Indication: ANTIPLATELET THERAPY
     Dosage: 250 MILLIGRAM, QD
     Route: 048
     Dates: start: 20140101, end: 20190610
  2. ALONEB [Concomitant]
     Active Substance: HYDROCHLOROTHIAZIDE\NEBIVOLOL HYDROCHLORIDE
  3. FLUIMUCIL [Concomitant]
     Active Substance: ACETYLCYSTEINE
  4. COVERLAM [Concomitant]
     Active Substance: AMLODIPINE BESYLATE\PERINDOPRIL ARGININE
  5. ENTACT [Suspect]
     Active Substance: ESCITALOPRAM OXALATE
     Indication: DEPRESSION
     Dosage: 10 MILLIGRAM, QD
     Route: 048
     Dates: start: 20140101
  6. ESTO                               /00022401/ [Concomitant]
  7. FOLINA                             /00024201/ [Concomitant]
     Active Substance: FOLIC ACID

REACTIONS (5)
  - Asthenia [Recovering/Resolving]
  - Abdominal pain upper [Recovering/Resolving]
  - Duodenal ulcer [Recovering/Resolving]
  - Rectal haemorrhage [Recovering/Resolving]
  - Melaena [Recovering/Resolving]

NARRATIVE: CASE EVENT DATE: 20190610
